FAERS Safety Report 7432635-6 (Version None)
Quarter: 2011Q2

REPORT INFORMATION
  Report Type: 
  Country: None (occurrence: None)
  Receive Date: 20110422
  Receipt Date: 20110415
  Transmission Date: 20111010
  Serious: Yes (Death, Other)
  Sender: FDA-Public Use
  Company Number: JP-ROCHE-690035

PATIENT
  Sex: Male
  Weight: 71 kg

DRUGS (21)
  1. PREDONINE [Suspect]
     Route: 048
  2. LUDIOMIL [Concomitant]
     Route: 048
  3. BACTRIM [Concomitant]
     Route: 048
  4. ACTEMRA [Suspect]
     Indication: POLYARTERITIS NODOSA
     Dosage: ADMINISTERED 5 TIMES
     Route: 042
     Dates: start: 20091009, end: 20100205
  5. ALENDRONATE SODIUM [Concomitant]
     Dosage: DRUG NAME REPORTED AS ALENDRONATE SODIUM HYDRATE(ALENDRONATE SODIUM HYDRATE)
     Route: 048
  6. PAXIL [Concomitant]
     Route: 048
  7. PREDONINE [Suspect]
     Indication: POLYARTERITIS NODOSA
     Dosage: DOSE DECREASED. DOSE FORM: PERORAL AGENT.
     Route: 048
     Dates: start: 20050101, end: 20090101
  8. PREDONINE [Suspect]
     Dosage: STARTED ON AN UNKNOWN DATE IN 2010.
     Route: 042
  9. PARIET [Concomitant]
     Route: 048
  10. LIPITOR [Concomitant]
     Route: 048
  11. PRORENAL [Concomitant]
  12. BIOFERMIN [Concomitant]
     Dosage: POWDERED MEDICINE
     Route: 048
  13. VOLTAREN [Concomitant]
     Dosage: SUPPOSITORAE RECTALE
     Route: 054
  14. ROHYPNOL [Concomitant]
     Route: 048
  15. ASPIRIN [Concomitant]
     Dosage: ENETERIC COATING TABLET
     Route: 048
  16. NEUROTROPIN [Concomitant]
     Route: 048
  17. BASEN [Concomitant]
     Route: 048
  18. PREDONINE [Suspect]
     Dosage: FORM: PERORAL AGENT.
     Route: 048
     Dates: start: 20090101
  19. RIVOTRIL [Concomitant]
     Dosage: PERORAL AGENT
     Route: 048
  20. LENDORMIN [Concomitant]
     Route: 048
  21. ALFAROL [Concomitant]
     Dosage: PERORAL AGENT
     Route: 048

REACTIONS (4)
  - ACUTE RESPIRATORY DISTRESS SYNDROME [None]
  - PANCREATITIS NECROTISING [None]
  - RESPIRATORY FAILURE [None]
  - BRONCHOPNEUMONIA [None]
